FAERS Safety Report 14946379 (Version 1)
Quarter: 2018Q2

REPORT INFORMATION
  Report Type: Spontaneous
  Country: US (occurrence: US)
  Receive Date: 20180529
  Receipt Date: 20180529
  Transmission Date: 20180711
  Serious: No
  Sender: FDA-Public Use
  Company Number: US-SA-2018SA144376

PATIENT
  Age: 64 Year
  Sex: Female

DRUGS (1)
  1. AUBAGIO [Suspect]
     Active Substance: TERIFLUNOMIDE
     Indication: MULTIPLE SCLEROSIS
     Dosage: 14 MG, QD
     Route: 048
     Dates: start: 20180116

REACTIONS (7)
  - Gait disturbance [Unknown]
  - Fatigue [Unknown]
  - Balance disorder [Unknown]
  - Alopecia [Unknown]
  - Abdominal discomfort [Unknown]
  - Migraine [Unknown]
  - Asthenia [Unknown]
